FAERS Safety Report 15355014 (Version 4)
Quarter: 2020Q4

REPORT INFORMATION
  Report Type: Spontaneous
  Country: FR (occurrence: FR)
  Receive Date: 20180906
  Receipt Date: 20201005
  Transmission Date: 20210113
  Serious: Yes (Death, Life-Threatening)
  Sender: FDA-Public Use
  Company Number: FR-ROCHE-2148127

PATIENT
  Age: 26 Year
  Sex: Female
  Weight: 97 kg

DRUGS (22)
  1. CELLCEPT [Suspect]
     Active Substance: MYCOPHENOLATE MOFETIL\MYCOPHENOLATE MOFETIL HYDROCHLORIDE
     Indication: PROPHYLAXIS AGAINST GRAFT VERSUS HOST DISEASE
     Route: 042
     Dates: start: 20180605, end: 201807
  2. FLUDARABINE [Suspect]
     Active Substance: FLUDARABINE PHOSPHATE
     Indication: STEM CELL TRANSPLANT
     Dosage: DATE OF MOST RECENT DOSE: 29/MAY/2018?40 MG/M2
     Route: 042
     Dates: start: 20180526
  3. SODIUM CHLORIDE. [Suspect]
     Active Substance: SODIUM CHLORIDE
     Indication: MEDICATION DILUTION
     Dosage: CONDITIONING REGIMEN; DAY 5, 4 AND 3; BUSILVEX 281.5 MG + 0.9% SODIUM CHLORIDE 563 ML
     Route: 041
     Dates: start: 20180526, end: 20180528
  4. SODIUM CHLORIDE. [Suspect]
     Active Substance: SODIUM CHLORIDE
     Dosage: CONDITIONING REGIMEN; DAY 7 AND 6; THIOTEPA 440 MG + 0.9% SODIUM CHLORIDE 500 ML
     Route: 041
     Dates: start: 20180524, end: 20180525
  5. CICLOSPORIN [Suspect]
     Active Substance: CYCLOSPORINE
     Indication: PROPHYLAXIS AGAINST TRANSPLANT REJECTION
  6. THIOTEPA. [Suspect]
     Active Substance: THIOTEPA
     Indication: STEM CELL TRANSPLANT
     Dosage: DATE OF MOST RECENT DOSE: 25/MAY/2018
     Route: 042
     Dates: start: 20180524
  7. ENDOXAN [Suspect]
     Active Substance: CYCLOPHOSPHAMIDE
     Indication: PROPHYLAXIS AGAINST TRANSPLANT REJECTION
  8. ACICLOVIR [Suspect]
     Active Substance: ACYCLOVIR
     Indication: PYREXIA
     Route: 042
     Dates: start: 201806, end: 201806
  9. FORTUM [Suspect]
     Active Substance: CEFTAZIDIME
     Indication: PYREXIA
     Route: 042
     Dates: start: 201806, end: 201806
  10. VANCOMYCINE [Suspect]
     Active Substance: VANCOMYCIN
     Indication: PYREXIA
     Route: 042
  11. DELURSAN [Suspect]
     Active Substance: URSODIOL
     Indication: PROPHYLAXIS AGAINST GRAFT VERSUS HOST DISEASE
  12. SODIUM CHLORIDE. [Suspect]
     Active Substance: SODIUM CHLORIDE
     Dosage: CONDITIONING REGIMEN; DAY 5, 4, 3 AND 2; FLUDARABINE 78 MG + 0.9% SODIUM CHLORIDE 100 ML
     Route: 041
     Dates: start: 20180526, end: 20180529
  13. TRIFLUCAN [Suspect]
     Active Substance: FLUCONAZOLE
     Indication: PYREXIA
     Dosage: 2 MG/ML
     Route: 042
     Dates: start: 201806, end: 201806
  14. CICLOSPORIN [Suspect]
     Active Substance: CYCLOSPORINE
     Indication: PROPHYLAXIS AGAINST GRAFT VERSUS HOST DISEASE
     Route: 042
     Dates: start: 20180605, end: 20180614
  15. ROCEPHINE [Suspect]
     Active Substance: CEFTRIAXONE SODIUM
     Indication: PYREXIA
     Dosage: MOST RECENT DOSE: 03/JUN/2018
     Route: 042
     Dates: start: 20180601
  16. AMIKACIN. [Suspect]
     Active Substance: AMIKACIN
     Indication: PYREXIA
     Route: 042
     Dates: start: 20180601, end: 20180603
  17. SODIUM CHLORIDE. [Suspect]
     Active Substance: SODIUM CHLORIDE
     Dosage: CYCLE 1 DAY 3, ENDOXAN 4400 MG + 5% SODIUM CHLORIDE 500 ML
     Route: 041
     Dates: start: 20180603, end: 20180604
  18. G-CSF [Concomitant]
     Active Substance: GRANULOCYTE COLONY-STIMULATING FACTOR NOS
     Indication: PROPHYLAXIS
     Route: 065
  19. UROMITEXAN [Suspect]
     Active Substance: MESNA
     Indication: PRODUCT USED FOR UNKNOWN INDICATION
     Dosage: ON DAY 3, 4 AND 5; 9 MG/KG
     Route: 041
     Dates: start: 20180603, end: 20180605
  20. BUSILVEX [Suspect]
     Active Substance: BUSULFAN
     Indication: STEM CELL TRANSPLANT
     Dosage: DATE OF MOST RECENT DOSE: 28/MAY/2018?6MG/ML   DOSE: 3.2 MG/KG
     Route: 042
     Dates: start: 20180526
  21. ENDOXAN [Suspect]
     Active Substance: CYCLOPHOSPHAMIDE
     Indication: PROPHYLAXIS AGAINST GRAFT VERSUS HOST DISEASE
     Dosage: MOST RECENT DOSE: 04/JUN/2018
     Route: 042
     Dates: start: 20180603
  22. DELURSAN [Suspect]
     Active Substance: URSODIOL
     Indication: DRUG TOXICITY PROPHYLAXIS
     Route: 048
     Dates: start: 201805, end: 201806

REACTIONS (21)
  - Pneumothorax [Fatal]
  - Mucosal inflammation [Unknown]
  - Nausea [Unknown]
  - Cardiac tamponade [Recovered/Resolved]
  - Pyelonephritis [Fatal]
  - Renal failure [Fatal]
  - Febrile bone marrow aplasia [Fatal]
  - Myocarditis [Fatal]
  - Disease recurrence [Fatal]
  - Candida infection [Unknown]
  - Pneumonia staphylococcal [Fatal]
  - Urinary tract infection [Unknown]
  - Hepatomegaly [Unknown]
  - Cardiogenic shock [Fatal]
  - Pelvic fluid collection [Unknown]
  - Weight increased [Unknown]
  - Atelectasis [Unknown]
  - Peritonitis [Unknown]
  - Diplopia [Unknown]
  - Sepsis [Fatal]
  - Pericardial effusion [Fatal]

NARRATIVE: CASE EVENT DATE: 201806
